FAERS Safety Report 18712138 (Version 2)
Quarter: 2021Q1

REPORT INFORMATION
  Report Type: Report from Study
  Country: US (occurrence: US)
  Receive Date: 20210107
  Receipt Date: 20210205
  Transmission Date: 20210419
  Serious: Yes (Hospitalization)
  Sender: FDA-Public Use
  Company Number: US-PFIZER INC-2020391434

PATIENT
  Age: 88 Year
  Sex: Female
  Weight: 61.68 kg

DRUGS (4)
  1. LOMOTIL [LOPERAMIDE HYDROCHLORIDE] [Concomitant]
     Active Substance: LOPERAMIDE HYDROCHLORIDE
  2. IBRANCE [Suspect]
     Active Substance: PALBOCICLIB
     Dosage: 75 MG, CYCLIC (DAILY 21 DAYS ON, 7DAYS OFF)
     Route: 048
     Dates: start: 20201116, end: 20201210
  3. IBRANCE [Suspect]
     Active Substance: PALBOCICLIB
     Indication: BREAST CANCER FEMALE
     Dosage: 100 MG, CYCLIC(100MG 1 TABLET DAILY FOR 21 DAYS ON, 7 DAYS OFF)
     Route: 048
     Dates: start: 20200928
  4. LETROZOLE. [Concomitant]
     Active Substance: LETROZOLE
     Dosage: UNK, DAILY

REACTIONS (11)
  - Asthenia [Unknown]
  - Diarrhoea [Unknown]
  - Dysphagia [Unknown]
  - Feeling abnormal [Unknown]
  - Joint swelling [Unknown]
  - Fluid retention [Unknown]
  - Dyspnoea [Unknown]
  - Weight decreased [Unknown]
  - Peripheral swelling [Unknown]
  - Dehydration [Unknown]
  - Decreased appetite [Not Recovered/Not Resolved]

NARRATIVE: CASE EVENT DATE: 2020
